FAERS Safety Report 5475903-X (Version None)
Quarter: 2007Q4

REPORT INFORMATION
  Report Type: 
  Country: None (occurrence: None)
  Receive Date: 20071003
  Receipt Date: 20070927
  Transmission Date: 20080405
  Serious: Yes (Hospitalization)
  Sender: FDA-Public Use
  Company Number: FR-ELI_LILLY_AND_COMPANY-FR200706002777

PATIENT
  Age: 60 Year
  Sex: Male

DRUGS (8)
  1. ZYPREXA [Suspect]
     Indication: BIPOLAR DISORDER
     Dosage: 20 MG, DAILY (1/D)
     Route: 048
     Dates: start: 20030101
  2. ZYPREXA [Suspect]
     Dosage: 40 MG, DAILY (1/D)
     Route: 048
     Dates: start: 20070301
  3. ZYPREXA [Suspect]
     Dosage: 30 MG, DAILY (1/D)
     Route: 048
     Dates: start: 20070727
  4. DEPAKOTE [Concomitant]
     Indication: BIPOLAR DISORDER
     Dosage: UNK, UNK
     Route: 048
     Dates: start: 20030101
  5. ATARAX /00058401/ [Concomitant]
     Indication: BIPOLAR DISORDER
     Route: 048
  6. CLOPIXOL /00876701/ [Concomitant]
     Indication: BIPOLAR DISORDER
  7. IRBESARTAN [Concomitant]
     Dosage: 75 MG, DAILY (1/D)
     Route: 048
  8. CARDENSIEL [Concomitant]
     Dosage: 5 MG, DAILY (1/D)
     Route: 048

REACTIONS (4)
  - CARDIAC VALVE DISEASE [None]
  - INTESTINAL INFARCTION [None]
  - OVERDOSE [None]
  - PSYCHOSIS POSTOPERATIVE [None]
